FAERS Safety Report 8521769-0 (Version None)
Quarter: 2012Q3

REPORT INFORMATION
  Report Type: 
  Country: None (occurrence: None)
  Receive Date: 20120719
  Receipt Date: 20120711
  Transmission Date: 20120928
  Serious: Yes (Other)
  Sender: FDA-Public Use
  Company Number: CA-JNJFOC-20120705732

PATIENT
  Sex: Male
  Weight: 87 kg

DRUGS (3)
  1. PANTOPRAZOLE [Concomitant]
     Route: 065
  2. REMICADE [Suspect]
     Indication: CROHN'S DISEASE
     Route: 042
     Dates: start: 20120613
  3. ENTOCORT EC [Concomitant]
     Route: 065

REACTIONS (3)
  - HYPOTENSION [None]
  - MALAISE [None]
  - BLOOD IRON DECREASED [None]
